FAERS Safety Report 10101517 (Version 1)
Quarter: 2014Q2

REPORT INFORMATION
  Report Type: Spontaneous
  Country: US (occurrence: None)
  Receive Date: 20140423
  Receipt Date: 20140423
  Transmission Date: 20141212
  Serious: Yes (Disabling, Other)
  Sender: FDA-Public Use
  Company Number: None

PATIENT
  Age: 50 Year
  Sex: Male
  Weight: 90.72 kg

DRUGS (7)
  1. LEVOFLOXACIN [Suspect]
     Indication: BRONCHITIS
     Dosage: 500MG ONE PER DAY FOR 10 DAYS BY MOUTH
     Route: 048
     Dates: start: 20140221, end: 20140302
  2. LISINOPRIL [Concomitant]
  3. LEVOTHYAMXINE [Concomitant]
  4. OLUX-E FOAM [Concomitant]
  5. COQ-10 [Concomitant]
  6. MAGNESINIM [Concomitant]
  7. INTRAMAX LIQUID VITAMIN SUPPLEMENT [Concomitant]

REACTIONS (9)
  - Thyroid function test abnormal [None]
  - Arthralgia [None]
  - Joint swelling [None]
  - Arthralgia [None]
  - Arthralgia [None]
  - Walking aid user [None]
  - Musculoskeletal pain [None]
  - Neuropathy peripheral [None]
  - Peripheral swelling [None]
